FAERS Safety Report 6062460-2 (Version None)
Quarter: 2009Q1

REPORT INFORMATION
  Report Type: 
  Country: None (occurrence: None)
  Receive Date: 20090203
  Receipt Date: 20080305
  Transmission Date: 20090719
  Serious: Yes (Death)
  Sender: FDA-Public Use
  Company Number: KR-NOVOPROD-272186

PATIENT
  Sex: Female
  Weight: 60 kg

DRUGS (4)
  1. LEVEMIR [Suspect]
     Indication: TYPE 2 DIABETES MELLITUS
     Dosage: 12 IU, QD
     Dates: start: 20070817, end: 20071025
  2. LEVEMIR [Suspect]
     Dosage: 24 IU, QD
     Dates: start: 20071025
  3. ASPIRIN [Concomitant]
     Dosage: 100 MG, QD
     Route: 048
  4. OLMESARTAN MEDOXOMIL [Concomitant]
     Dosage: 50 MG, QD
     Route: 048

REACTIONS (1)
  - CEREBRAL INFARCTION [None]
